FAERS Safety Report 9302307 (Version 1)
Quarter: 2013Q2

REPORT INFORMATION
  Report Type: Spontaneous
  Country: FR (occurrence: FR)
  Receive Date: 20130522
  Receipt Date: 20130522
  Transmission Date: 20140414
  Serious: Yes (Other)
  Sender: FDA-Public Use
  Company Number: FR-ABBOTT-13X-056-1092460-00

PATIENT
  Age: 58 Year
  Sex: Male

DRUGS (4)
  1. DEPAKOTE [Suspect]
     Indication: DELIRIUM
     Route: 048
     Dates: start: 200906, end: 201112
  2. LEPTICUR [Suspect]
     Indication: DELIRIUM
     Route: 048
     Dates: start: 200906
  3. AMISULPRIDE [Suspect]
     Indication: DELIRIUM
     Route: 048
     Dates: start: 200906, end: 201112
  4. LEXOMIL [Suspect]
     Indication: DELIRIUM
     Route: 048
     Dates: start: 200906

REACTIONS (1)
  - Neurosensory hypoacusis [Recovered/Resolved]
